FAERS Safety Report 12730948 (Version 1)
Quarter: 2016Q3

REPORT INFORMATION
  Report Type: Spontaneous
  Country: US (occurrence: US)
  Receive Date: 20160908
  Receipt Date: 20160908
  Transmission Date: 20161109
  Serious: Yes (Hospitalization)
  Sender: FDA-Public Use
  Company Number: None

PATIENT
  Age: 71 Year
  Sex: Male

DRUGS (18)
  1. ZANTAC [Concomitant]
     Active Substance: RANITIDINE HYDROCHLORIDE
  2. OPEMPRAZOLE [Concomitant]
  3. POMALYST [Concomitant]
     Active Substance: POMALIDOMIDE
  4. ADVAIR HFA [Concomitant]
     Active Substance: FLUTICASONE PROPIONATE\SALMETEROL XINAFOATE
  5. ASPRIN [Concomitant]
     Active Substance: ASPIRIN
  6. DECADRON [Concomitant]
     Active Substance: DEXAMETHASONE
  7. FEXOFENADINE [Concomitant]
     Active Substance: FEXOFENADINE\FEXOFENADINE HYDROCHLORIDE
  8. GLYLBURIDE [Concomitant]
  9. STOOL SOFTNER [Concomitant]
     Active Substance: DOCUSATE SODIUM
  10. MIRALAX [Concomitant]
     Active Substance: POLYETHYLENE GLYCOL 3350
  11. SIMVASTATIN. [Concomitant]
     Active Substance: SIMVASTATIN
  12. NEURONTIN [Concomitant]
     Active Substance: GABAPENTIN
  13. MUCINEX [Concomitant]
     Active Substance: GUAIFENESIN
  14. OXYCODONE [Concomitant]
     Active Substance: OXYCODONE
  15. DELICOL [Concomitant]
  16. FLUTICASONE [Concomitant]
     Active Substance: FLUTICASONE\FLUTICASONE PROPIONATE
  17. ALLOPURINOL. [Concomitant]
     Active Substance: ALLOPURINOL
  18. NINLARO [Suspect]
     Active Substance: IXAZOMIB
     Indication: PLASMA CELL MYELOMA
     Dosage: NINLARO 4MG 1 PO QW X 3W PO
     Route: 048

REACTIONS (1)
  - Pneumonia [None]
